FAERS Safety Report 4319941-9 (Version None)
Quarter: 2004Q1

REPORT INFORMATION
  Report Type: 
  Country: None (occurrence: None)
  Receive Date: 20040317
  Receipt Date: 20040310
  Transmission Date: 20041129
  Serious: Yes (Hospitalization)
  Sender: FDA-Public Use
  Company Number: 2004198642US

PATIENT
  Age: 35 Year
  Sex: Male
  Weight: 103 kg

DRUGS (24)
  1. VANCOMYCIN [Suspect]
     Indication: PNEUMONIA STAPHYLOCOCCAL
     Dosage: 1000 MG, CYCLIC, EVERY 12 HOURS, IV; 2000 MG, CYCLIC, EVERY 6 HOURS, IV
     Route: 042
     Dates: start: 20031214
  2. INSULIN [Concomitant]
  3. NICODERM [Concomitant]
  4. TYLENOL (CAPLET) [Concomitant]
  5. LOVENOX [Concomitant]
  6. PERIDEX (CHLORHEXIDINE GLUCONATE) [Concomitant]
  7. METOPROLOL [Concomitant]
  8. AFRIN (OXYMETAZOLINE HYDROCHLORIDE, PHENYLMERCURIC ACETATE, AMIOACETIC [Concomitant]
  9. LEVOPHED [Concomitant]
  10. VERSED [Concomitant]
  11. FENTANYL [Concomitant]
  12. AMIKACIN [Concomitant]
  13. LEVAQUIN [Concomitant]
  14. VASOPRESSIN INJECTION (VASOPRESSIN INJECTION) [Concomitant]
  15. DIFLUCAN [Concomitant]
  16. CORTROSYN (TETRACOSACTIDE) [Concomitant]
  17. SENOKOT [Concomitant]
  18. DULCOLAX [Concomitant]
  19. REGLAN [Concomitant]
  20. ERYTHROMYCIN ETHYLSUCCINATE [Concomitant]
  21. LORTAB [Concomitant]
  22. ATIVAN [Concomitant]
  23. METHADONE HCL [Concomitant]
  24. MILK OF MAGNESIA TAB [Concomitant]

REACTIONS (3)
  - DRUG INEFFECTIVE [None]
  - OPEN WOUND [None]
  - STAPHYLOCOCCAL INFECTION [None]
